FAERS Safety Report 22886973 (Version 9)
Quarter: 2024Q2

REPORT INFORMATION
  Report Type: Report from Study
  Country: US (occurrence: US)
  Receive Date: 20230831
  Receipt Date: 20240625
  Transmission Date: 20240716
  Serious: Yes (Hospitalization, Other)
  Sender: FDA-Public Use
  Company Number: US-UCBSA-2023025189

PATIENT
  Sex: Female
  Weight: 35.4 kg

DRUGS (19)
  1. FINTEPLA [Interacting]
     Active Substance: FENFLURAMINE
     Indication: Lennox-Gastaut syndrome
     Dosage: 5.6 MILLILITER, 2X/DAY (BID)
     Route: 048
     Dates: start: 20230424, end: 2023
  2. FINTEPLA [Interacting]
     Active Substance: FENFLURAMINE
     Dosage: 5.6 MILLILITER, 2X/DAY (BID)
     Route: 048
     Dates: start: 2023, end: 2023
  3. FINTEPLA [Interacting]
     Active Substance: FENFLURAMINE
     Dosage: 5.6 MILLILITER, 2X/DAY (BID)
     Route: 048
     Dates: start: 20230518, end: 2023
  4. FINTEPLA [Interacting]
     Active Substance: FENFLURAMINE
     Dosage: 5.6 MILLILITER, 2X/DAY (BID)
     Route: 048
     Dates: start: 20230820
  5. FINTEPLA [Interacting]
     Active Substance: FENFLURAMINE
     Dosage: 5.6 MILLILITER, 2X/DAY (BID)
     Route: 048
     Dates: start: 20230519
  6. FINTEPLA [Interacting]
     Active Substance: FENFLURAMINE
     Dosage: 12.25 MG (5.6 ML) BY MOUTH TWICE A DAY
     Route: 048
     Dates: start: 2023
  7. FINTEPLA [Interacting]
     Active Substance: FENFLURAMINE
     Dosage: 5.6 MILLILITER, 2X/DAY (BID)
     Route: 048
     Dates: start: 2023
  8. FINTEPLA [Interacting]
     Active Substance: FENFLURAMINE
     Dosage: 5.6 MILLILITER, 2X/DAY (BID)
     Route: 048
  9. FINTEPLA [Interacting]
     Active Substance: FENFLURAMINE
     Dosage: 5.6 MILLILITER, 2X/DAY (BID)
     Route: 048
  10. BRIVARACETAM [Concomitant]
     Active Substance: BRIVARACETAM
     Indication: Product used for unknown indication
     Dosage: 100 MILLIGRAM, 2X/DAY (BID)
     Route: 048
     Dates: start: 20230501
  11. CLOBAZAM [Concomitant]
     Active Substance: CLOBAZAM
     Indication: Product used for unknown indication
     Dosage: 30 MILLIGRAM, 2X/DAY (BID) 2.5 TABLETS TWICE A DAY
     Route: 048
     Dates: start: 20230424, end: 20230623
  12. CLOBAZAM [Concomitant]
     Active Substance: CLOBAZAM
     Dosage: 2.5 TABLETS IN THE AM AND 3 TABLETS IN THE EVENING
     Dates: start: 20231005
  13. BANZEL [Concomitant]
     Active Substance: RUFINAMIDE
     Indication: Product used for unknown indication
     Dosage: 1,000 MG (2.5 TABS) BY MOUTH TWICE A DAY
     Route: 048
     Dates: start: 20230412
  14. VALTOCO [Concomitant]
     Active Substance: DIAZEPAM
     Indication: Seizure cluster
     Dosage: ADMINISTER 10MG (1 SPRAY) INTO THE NOSE AS NEEDED
     Route: 045
     Dates: start: 20230426
  15. VALTOCO [Concomitant]
     Active Substance: DIAZEPAM
     Dosage: ADMINISTER 10MG (1 SPRAY) INTO THE NOSE AS NEEDED
     Route: 045
     Dates: start: 20231010
  16. ALUMINIUM HYDROXIDE;DIPHENHYDRAMINE HYDROCHLORIDE;LIDOCAINE HYDROCHLOR [Concomitant]
     Indication: Dysphagia
     Dosage: SWISH IN MOUTH AND SPIT 1 O ML EVERY 4 HOURS AS NEEDED
     Dates: start: 20231001
  17. ROXICODONE [Concomitant]
     Active Substance: OXYCODONE HYDROCHLORIDE
     Indication: Breakthrough pain
     Dosage: ADMINISTER 2 ML (2 MG) THROUGH NG-TUBE EVERY 4 HOURS AS NEEDED
     Dates: start: 20231001
  18. ROXICODONE [Concomitant]
     Active Substance: OXYCODONE HYDROCHLORIDE
     Indication: Malaise
  19. ROXICODONE [Concomitant]
     Active Substance: OXYCODONE HYDROCHLORIDE
     Indication: Oral pain

REACTIONS (32)
  - Seizure [Not Recovered/Not Resolved]
  - Fall [Not Recovered/Not Resolved]
  - Lip injury [Not Recovered/Not Resolved]
  - Suture insertion [Not Recovered/Not Resolved]
  - Herpes simplex [Recovered/Resolved]
  - Vulvovaginal injury [Not Recovered/Not Resolved]
  - Gait disturbance [Not Recovered/Not Resolved]
  - Fatigue [Not Recovered/Not Resolved]
  - Eating disorder [Not Recovered/Not Resolved]
  - Lethargy [Not Recovered/Not Resolved]
  - Behaviour disorder [Not Recovered/Not Resolved]
  - Hypotonia [Not Recovered/Not Resolved]
  - Decreased appetite [Recovered/Resolved]
  - Weight decreased [Not Recovered/Not Resolved]
  - Noninfective gingivitis [Recovered/Resolved]
  - Urine output decreased [Recovered/Resolved]
  - Constipation [Recovered/Resolved]
  - Dyspepsia [Not Recovered/Not Resolved]
  - Swelling [Not Recovered/Not Resolved]
  - Contusion [Not Recovered/Not Resolved]
  - Abnormal behaviour [Not Recovered/Not Resolved]
  - Drug interaction [Unknown]
  - Psychomotor hyperactivity [Recovered/Resolved]
  - Crying [Not Recovered/Not Resolved]
  - Gingival bleeding [Recovered/Resolved]
  - Gingival swelling [Recovered/Resolved]
  - Tooth fracture [Recovered/Resolved]
  - Oropharyngeal plaque [Recovered/Resolved]
  - Gingivitis [Recovered/Resolved]
  - Skin striae [Not Recovered/Not Resolved]
  - Taste disorder [Not Recovered/Not Resolved]
  - Drug ineffective [Unknown]

NARRATIVE: CASE EVENT DATE: 20230101
